FAERS Safety Report 13641965 (Version 1)
Quarter: 2017Q2

REPORT INFORMATION
  Report Type: Spontaneous
  Country: CA (occurrence: CA)
  Receive Date: 20170612
  Receipt Date: 20170612
  Transmission Date: 20170830
  Serious: Yes (Other)
  Sender: FDA-Public Use
  Company Number: CA-JNJFOC-20170607761

PATIENT
  Sex: Female

DRUGS (4)
  1. METHOTREXATE. [Concomitant]
     Active Substance: METHOTREXATE
     Route: 065
  2. XARELTO [Suspect]
     Active Substance: RIVAROXABAN
     Indication: THROMBOSIS PROPHYLAXIS
     Route: 048
  3. ACCURETIC [Concomitant]
     Active Substance: HYDROCHLOROTHIAZIDE\QUINAPRIL HYDROCHLORIDE
     Route: 065
  4. PREVACID [Concomitant]
     Active Substance: LANSOPRAZOLE
     Route: 065

REACTIONS (3)
  - Diplopia [Recovered/Resolved]
  - Typical aura without headache [Recovered/Resolved]
  - Product substitution issue [Recovered/Resolved]
